FAERS Safety Report 17108841 (Version 2)
Quarter: 2020Q1

REPORT INFORMATION
  Report Type: Spontaneous
  Country: IN (occurrence: IN)
  Receive Date: 20191204
  Receipt Date: 20200225
  Transmission Date: 20200409
  Serious: Yes (Other)
  Sender: FDA-Public Use
  Company Number: IN-AMGEN-INDSP2019199937

PATIENT
  Age: 44 Year
  Sex: Female

DRUGS (17)
  1. CYCLOPHOSPHAMIDE. [Concomitant]
     Active Substance: CYCLOPHOSPHAMIDE
     Indication: METASTASES TO LIVER
  2. RANITIDINE. [Concomitant]
     Active Substance: RANITIDINE
     Dosage: 50 MILLIGRAM, BID
     Route: 042
     Dates: start: 201807
  3. CABERGOLINE. [Concomitant]
     Active Substance: CABERGOLINE
     Indication: SUPPRESSED LACTATION
     Dosage: 0.5 MILLIGRAM
     Route: 048
     Dates: start: 2018
  4. DOCETAXEL. [Concomitant]
     Active Substance: DOCETAXEL
     Indication: METASTASES TO LUNG
  5. CYCLOPHOSPHAMIDE. [Concomitant]
     Active Substance: CYCLOPHOSPHAMIDE
     Indication: BREAST CANCER STAGE IV
     Dosage: 800 MILLIGRAM, Q3WK SIX CYCLES
     Route: 042
     Dates: start: 201807
  6. CYCLOPHOSPHAMIDE. [Concomitant]
     Active Substance: CYCLOPHOSPHAMIDE
     Indication: METASTASES TO LUNG
  7. TAMOXIFEN [Concomitant]
     Active Substance: TAMOXIFEN
     Indication: HORMONE THERAPY
     Dosage: 20 MILLIGRAM
     Route: 048
  8. DOXORUBICIN [Concomitant]
     Active Substance: DOXORUBICIN
     Indication: BREAST CANCER STAGE IV
     Dosage: 80 MILLIGRAM, Q3WK SIX CYCLES
     Route: 042
     Dates: start: 201807
  9. THYROXINE [Concomitant]
     Active Substance: LEVOTHYROXINE
     Indication: HYPOTHYROIDISM
     Dosage: 75 MICROGRAM, QD
  10. DOXORUBICIN [Concomitant]
     Active Substance: DOXORUBICIN
     Indication: METASTASES TO LIVER
  11. ONDANSETRON [Concomitant]
     Active Substance: ONDANSETRON
     Dosage: 8 MILLIGRAM, BID
     Route: 042
     Dates: start: 201807
  12. FILGRASTIM [Suspect]
     Active Substance: FILGRASTIM
     Indication: PRODUCT USED FOR UNKNOWN INDICATION
     Dosage: 300 MICROGRAM, ON DAY 2-4 OF THE CYCLE
     Route: 058
     Dates: start: 201807, end: 2018
  13. DOXORUBICIN [Concomitant]
     Active Substance: DOXORUBICIN
     Indication: METASTASES TO LUNG
  14. DEXAMETHASONE. [Concomitant]
     Active Substance: DEXAMETHASONE
     Dosage: 8 MILLIGRAM, BID
     Route: 042
     Dates: start: 201807, end: 2018
  15. NIFEDIPINE. [Concomitant]
     Active Substance: NIFEDIPINE
     Indication: HYPERTENSION
     Dosage: 10 MILLIGRAM, QD
  16. DOCETAXEL. [Concomitant]
     Active Substance: DOCETAXEL
     Indication: BREAST CANCER STAGE IV
     Dosage: 100 MILLIGRAM, Q3WK, SIX CYCLES
     Route: 042
     Dates: start: 201807
  17. DOCETAXEL. [Concomitant]
     Active Substance: DOCETAXEL
     Indication: METASTASES TO LIVER

REACTIONS (3)
  - Foetal hypokinesia [Unknown]
  - Premature delivery [Unknown]
  - Maternal exposure during pregnancy [Unknown]

NARRATIVE: CASE EVENT DATE: 2018
